FAERS Safety Report 9463698 (Version 2)
Quarter: 2013Q3

REPORT INFORMATION
  Report Type: Report from Study
  Country: VE (occurrence: VE)
  Receive Date: 20130819
  Receipt Date: 20130823
  Transmission Date: 20140515
  Serious: Yes (Death, Hospitalization)
  Sender: FDA-Public Use
  Company Number: PHHY2013VE088755

PATIENT
  Age: 53 Year
  Sex: Female

DRUGS (1)
  1. SANDOSTATIN LAR [Suspect]
     Indication: GASTRIC CANCER
     Dosage: 20 MG, PER MONTH

REACTIONS (4)
  - Respiratory arrest [Fatal]
  - Haemorrhage [Unknown]
  - Platelet count decreased [Unknown]
  - Immunosuppression [Unknown]
